FAERS Safety Report 20634065 (Version 2)
Quarter: 2022Q1

REPORT INFORMATION
  Report Type: Spontaneous
  Country: US (occurrence: US)
  Receive Date: 20220324
  Receipt Date: 20220331
  Transmission Date: 20220423
  Serious: No
  Sender: FDA-Public Use
  Company Number: US-BRISTOL-MYERS SQUIBB COMPANY-2022-010285

PATIENT
  Age: 74 Year
  Sex: Female

DRUGS (1)
  1. SPRYCEL [Suspect]
     Active Substance: DASATINIB
     Indication: Product used for unknown indication
     Dosage: TAKE 2 TABLETS (100MG) BY MOUTH ONCE DAILY ON DAY 1 AND ON DAY 2, TAKE 1 TABLET (50MG) BY MOUTH ONCE
     Route: 048

REACTIONS (3)
  - Herpes zoster [Unknown]
  - Cardiac disorder [Unknown]
  - Skin disorder [Unknown]

NARRATIVE: CASE EVENT DATE: 20220201
